FAERS Safety Report 25334526 (Version 1)
Quarter: 2025Q2

REPORT INFORMATION
  Report Type: Spontaneous
  Country: US (occurrence: US)
  Receive Date: 20250520
  Receipt Date: 20250520
  Transmission Date: 20250716
  Serious: No
  Sender: AZURITY PHARMACEUTICALS
  Company Number: US-AZURITY PHARMACEUTICALS, INC.-AZR202504-001088

PATIENT
  Age: 31 Year
  Sex: Male

DRUGS (1)
  1. TESTOSTERONE CYPIONATE [Suspect]
     Active Substance: TESTOSTERONE CYPIONATE
     Indication: Hormone therapy
     Route: 065

REACTIONS (4)
  - Injection site pain [Unknown]
  - Product with quality issue administered [Unknown]
  - Product dose omission issue [Unknown]
  - Product deposit [Unknown]

NARRATIVE: CASE EVENT DATE: 20250401
